FAERS Safety Report 17438790 (Version 1)
Quarter: 2020Q1

REPORT INFORMATION
  Report Type: Spontaneous
  Country: CA (occurrence: CA)
  Receive Date: 20200220
  Receipt Date: 20200220
  Transmission Date: 20200409
  Serious: Yes (Other)
  Sender: FDA-Public Use
  Company Number: CA-ORION CORPORATION ORION PHARMA-TREX2020-0921

PATIENT
  Age: 76 Year
  Sex: Male

DRUGS (2)
  1. METHOTREXATE (TRADE NAME UNKNOWN) [Suspect]
     Active Substance: METHOTREXATE
     Indication: PRODUCT USED FOR UNKNOWN INDICATION
     Route: 048
     Dates: start: 2014
  2. HYDROXYCHLOROQUINE [Concomitant]
     Active Substance: HYDROXYCHLOROQUINE
     Route: 065
     Dates: start: 2014

REACTIONS (2)
  - Hip fracture [Unknown]
  - Fall [Unknown]

NARRATIVE: CASE EVENT DATE: 201801
